FAERS Safety Report 8197201-6 (Version None)
Quarter: 2012Q1

REPORT INFORMATION
  Report Type: 
  Country: None (occurrence: None)
  Receive Date: 20120309
  Receipt Date: 20120228
  Transmission Date: 20120608
  Serious: Yes (Death, Other)
  Sender: FDA-Public Use
  Company Number: US-NAPPMUNDI-USA-2011-0078504

PATIENT
  Age: 44 Year
  Sex: Female

DRUGS (1)
  1. BUTRANS [Suspect]
     Indication: PAIN MANAGEMENT
     Route: 062

REACTIONS (5)
  - OEDEMA MOUTH [None]
  - ORAL DISCOMFORT [None]
  - SURGERY [None]
  - POST PROCEDURAL PULMONARY EMBOLISM [None]
  - ORAL PRURITUS [None]
